FAERS Safety Report 16307490 (Version 1)
Quarter: 2019Q2

REPORT INFORMATION
  Report Type: Spontaneous
  Country: US (occurrence: US)
  Receive Date: 20190514
  Receipt Date: 20190514
  Transmission Date: 20190711
  Serious: No
  Sender: FDA-Public Use
  Company Number: US-DRREDDYS-USA/USA/19/0110057

PATIENT
  Sex: Female
  Weight: 74.25 kg

DRUGS (2)
  1. ALLERGY RELIEF MEDICINE [Concomitant]
     Indication: HYPERSENSITIVITY
  2. OMEPRAZOLE DELAYED RELEASE CAPSULES 20 MG [Suspect]
     Active Substance: OMEPRAZOLE
     Indication: DYSPEPSIA
     Route: 048

REACTIONS (2)
  - Product use issue [Unknown]
  - Dizziness [Unknown]
